FAERS Safety Report 6885781-X (Version None)
Quarter: 2010Q3

REPORT INFORMATION
  Report Type: 
  Country: None (occurrence: None)
  Receive Date: 20100729
  Receipt Date: 20080424
  Transmission Date: 20110219
  Serious: No
  Sender: FDA-Public Use
  Company Number: US-PFIZER INC-2008026300

PATIENT
  Sex: Male
  Weight: 85.73 kg

DRUGS (6)
  1. CELEBREX [Suspect]
     Indication: ARTHRITIS
     Route: 048
     Dates: start: 20080320
  2. CELEBREX [Suspect]
     Indication: ARTHROPATHY
  3. CARDURA [Concomitant]
  4. TENORMIN [Concomitant]
  5. DYAZIDE [Concomitant]
  6. ZOCOR [Concomitant]

REACTIONS (1)
  - EPISTAXIS [None]
